FAERS Safety Report 8515053-9 (Version None)
Quarter: 2012Q3

REPORT INFORMATION
  Report Type: 
  Country: None (occurrence: None)
  Receive Date: 20120717
  Receipt Date: 20120705
  Transmission Date: 20120928
  Serious: No
  Sender: FDA-Public Use
  Company Number: US-ASTRAZENECA-2012SE45901

PATIENT
  Sex: Female

DRUGS (4)
  1. ZESTORETIC [Suspect]
     Route: 048
  2. NEXIUM [Suspect]
     Route: 048
  3. EYEDROPS [Concomitant]
     Indication: GLAUCOMA
  4. SYNTHROID [Concomitant]

REACTIONS (1)
  - GLAUCOMA [None]
